FAERS Safety Report 7654541-4 (Version None)
Quarter: 2011Q3

REPORT INFORMATION
  Report Type: 
  Country: None (occurrence: None)
  Receive Date: 20110803
  Receipt Date: 20110729
  Transmission Date: 20111222
  Serious: Yes (Disabling, Other)
  Sender: FDA-Public Use
  Company Number: US-MERCK-1008USA00566

PATIENT
  Age: 56 Year
  Sex: Female
  Weight: 41 kg

DRUGS (4)
  1. BONIVA [Suspect]
     Indication: OSTEOPENIA
     Route: 048
     Dates: start: 20070301, end: 20081201
  2. PREMPRO [Concomitant]
     Route: 065
     Dates: start: 19980101, end: 20040101
  3. FOSAMAX [Suspect]
     Indication: OSTEOPENIA
     Route: 048
     Dates: start: 20010606, end: 20070101
  4. FOSAMAX [Suspect]
     Indication: OSTEOPOROSIS
     Route: 048
     Dates: start: 20010606, end: 20070101

REACTIONS (29)
  - CARDIAC MURMUR [None]
  - GINGIVAL ERYTHEMA [None]
  - SEBORRHOEIC KERATOSIS [None]
  - STRESS [None]
  - CELLULITIS [None]
  - DIVERTICULUM INTESTINAL [None]
  - ORAL TORUS [None]
  - BREAST DISORDER [None]
  - GINGIVAL DISORDER [None]
  - HYPERCEMENTOSIS [None]
  - BASAL CELL CARCINOMA [None]
  - DYSPLASIA [None]
  - SWELLING FACE [None]
  - OSTEONECROSIS OF JAW [None]
  - BREAST HYPERPLASIA [None]
  - BREAST CALCIFICATIONS [None]
  - COLONIC POLYP [None]
  - FISTULA DISCHARGE [None]
  - NAUSEA [None]
  - RECTAL HAEMORRHAGE [None]
  - OSTEOMYELITIS [None]
  - OSTEITIS [None]
  - NECK PAIN [None]
  - SCOLIOSIS [None]
  - SINUS TACHYCARDIA [None]
  - BASOSQUAMOUS CARCINOMA [None]
  - VAGINAL HAEMORRHAGE [None]
  - WHITE BLOOD CELL COUNT DECREASED [None]
  - TONGUE DISORDER [None]
